FAERS Safety Report 4686434-9 (Version None)
Quarter: 2005Q2

REPORT INFORMATION
  Report Type: 
  Country: None (occurrence: None)
  Receive Date: 20050606
  Receipt Date: 20050523
  Transmission Date: 20051028
  Serious: Yes (Other)
  Sender: FDA-Public Use
  Company Number: 2005078482

PATIENT
  Age: 10 Month
  Sex: Male

DRUGS (5)
  1. ZYRTEC [Suspect]
     Indication: PROPHYLAXIS
     Dosage: 5 MG (1 D), ORAL
     Route: 048
     Dates: start: 20050202, end: 20050216
  2. FLUTICASONE PROPIONATE [Concomitant]
  3. INFLUENZA VACCINE (INFLUENZA VACCINE) [Concomitant]
  4. STAPHYLOCOCCUS VACCIN (STAPHYLOCOCCUS VACCIN) [Concomitant]
  5. ALL OTHER THERAPEUTIC PRODUCTS (ALL OTHER THERAPEUTIC PRODUCTS) [Concomitant]

REACTIONS (1)
  - BINOCULAR EYE MOVEMENT DISORDER [None]
